FAERS Safety Report 25956814 (Version 3)
Quarter: 2025Q4

REPORT INFORMATION
  Report Type: Spontaneous
  Country: EU (occurrence: EU)
  Receive Date: 20251024
  Receipt Date: 20251215
  Transmission Date: 20260117
  Serious: Yes (Hospitalization)
  Sender: ALEXION PHARMACEUTICALS
  Company Number: EU-AMGEN-DEUSP2025200596

PATIENT
  Age: 88 Year
  Sex: Female

DRUGS (21)
  1. FULVESTRANT [Suspect]
     Active Substance: FULVESTRANT
     Indication: Breast cancer
     Dosage: 500 MILLIGRAM, DAY 1 OF 28 DAYS CYCLE
  2. FULVESTRANT [Suspect]
     Active Substance: FULVESTRANT
  3. XGEVA [Suspect]
     Active Substance: DENOSUMAB
     Indication: Prophylaxis
     Dosage: 120 MILLIGRAM, QMO
     Dates: start: 20220114, end: 20250911
  4. XGEVA [Suspect]
     Active Substance: DENOSUMAB
     Dosage: 120 MILLIGRAM, QMO
     Dates: start: 20220114, end: 20250814
  5. PROLIA [Suspect]
     Active Substance: DENOSUMAB
     Indication: Prophylaxis
     Dosage: UNK
     Route: 065
  6. PALBOCICLIB [Suspect]
     Active Substance: PALBOCICLIB
     Indication: Breast cancer
     Dosage: 125 MILLIGRAM, DAY 1 TO DAY 21, Q4WK
     Route: 061
     Dates: start: 20211118, end: 20221012
  7. PALBOCICLIB [Suspect]
     Active Substance: PALBOCICLIB
     Dosage: 125 MILLIGRAM, DAY 1 TO DAY 21, Q4WK
     Route: 061
  8. PREDNISONE [Concomitant]
     Active Substance: PREDNISONE
     Dosage: UNK
     Route: 061
  9. METOPROLOL [Concomitant]
     Active Substance: METOPROLOL
     Indication: Essential hypertension
     Dosage: UNK
     Route: 061
  10. CRESTOR [Concomitant]
     Active Substance: ROSUVASTATIN CALCIUM
     Indication: Hypercholesterolaemia
     Dosage: UNK
     Route: 061
  11. DIGITOXIN [Concomitant]
     Active Substance: DIGITOXIN
     Indication: Arrhythmia
     Dosage: UNK
     Route: 061
  12. OMEPRAZOLE [Concomitant]
     Active Substance: OMEPRAZOLE
     Indication: Prophylaxis
     Dosage: UNK
     Route: 061
  13. EDOXABAN TOSYLATE [Concomitant]
     Active Substance: EDOXABAN TOSYLATE
     Indication: Prophylaxis
     Dosage: UNK
     Route: 061
  14. VERAPAMIL [Concomitant]
     Active Substance: VERAPAMIL HYDROCHLORIDE
     Indication: Essential hypertension
     Dosage: UNK
     Route: 061
  15. CHOLECALCIFEROL [Concomitant]
     Active Substance: CHOLECALCIFEROL
     Indication: Prophylaxis
     Dosage: UNK
     Route: 061
  16. NIFEDIPINE [Concomitant]
     Active Substance: NIFEDIPINE
     Indication: Rheumatoid arthritis
     Dosage: UNK
     Route: 061
  17. BECLOMETHASONE DIPROPIONATE [Concomitant]
     Active Substance: BECLOMETHASONE DIPROPIONATE
     Indication: Prophylaxis
     Dosage: UNK
     Route: 061
  18. ZOLPIDEM [Concomitant]
     Active Substance: ZOLPIDEM TARTRATE
     Indication: Prophylaxis
     Dosage: UNK
     Route: 061
  19. NOVALGIN (METAMIZOLE SODIUM) [Concomitant]
     Active Substance: METAMIZOLE SODIUM
     Indication: Prophylaxis
     Dosage: UNK
     Route: 061
  20. ESTRIOL [Concomitant]
     Active Substance: ESTRIOL
     Indication: Prophylaxis
     Dosage: UNK
     Route: 065
  21. Mirfulan [Concomitant]
     Indication: Prophylaxis
     Dosage: UNK

REACTIONS (1)
  - Tooth abscess [Not Recovered/Not Resolved]

NARRATIVE: CASE EVENT DATE: 20250819
